FAERS Safety Report 5739799-0 (Version None)
Quarter: 2008Q2

REPORT INFORMATION
  Report Type: 
  Country: None (occurrence: None)
  Receive Date: 20080513
  Receipt Date: 20080513
  Transmission Date: 20081010
  Serious: Yes (Hospitalization)
  Sender: FDA-Public Use
  Company Number: None

PATIENT
  Age: 70 Year
  Sex: Female

DRUGS (1)
  1. IBUPROFEN [Suspect]
     Indication: BACK PAIN
     Dosage: 400 MG Q4HRS PO
     Route: 048

REACTIONS (8)
  - ARTERIOVENOUS MALFORMATION [None]
  - BLOOD IRON DECREASED [None]
  - CHEST PAIN [None]
  - DYSPNOEA [None]
  - GASTRIC ULCER [None]
  - HELICOBACTER INFECTION [None]
  - MICROCYTIC ANAEMIA [None]
  - OESOPHAGITIS [None]
